FAERS Safety Report 17496525 (Version 1)
Quarter: 2020Q1

REPORT INFORMATION
  Report Type: Spontaneous
  Country: DK (occurrence: DK)
  Receive Date: 20200304
  Receipt Date: 20200304
  Transmission Date: 20200409
  Serious: Yes (Other)
  Sender: FDA-Public Use
  Company Number: DK-MYLANLABS-2020M1022318

PATIENT
  Age: 64 Year
  Sex: Male

DRUGS (4)
  1. EVEROLIMUS. [Concomitant]
     Active Substance: EVEROLIMUS
     Indication: IMMUNOSUPPRESSANT DRUG THERAPY
     Dosage: UNK
  2. PACLITAXEL. [Suspect]
     Active Substance: PACLITAXEL
     Indication: KAPOSI^S SARCOMA
     Dosage: 30 MILLIGRAM, CYCLE (10 CYCLES, DAYS 1 AND 8; CYCLICAL)
     Route: 065
  3. PREDNISOLONE. [Concomitant]
     Active Substance: PREDNISOLONE
     Indication: IMMUNOSUPPRESSANT DRUG THERAPY
     Dosage: UNK (REDUCED TO 5 MG DAILY)
  4. GEMCITABINE. [Suspect]
     Active Substance: GEMCITABINE
     Indication: KAPOSI^S SARCOMA
     Dosage: 304 MILLIGRAM, CYCLE (10 CYCLES; CYCLICAL)
     Route: 065

REACTIONS (3)
  - Off label use [Unknown]
  - Alanine aminotransferase increased [Recovered/Resolved]
  - Leukopenia [Recovered/Resolved]
